FAERS Safety Report 25118146 (Version 1)
Quarter: 2025Q1

REPORT INFORMATION
  Report Type: Spontaneous
  Country: US (occurrence: None)
  Receive Date: 20250324
  Receipt Date: 20250324
  Transmission Date: 20250408
  Serious: Yes (Hospitalization)
  Sender: FDA-CTU
  Company Number: None

PATIENT
  Age: 61 Year
  Sex: Female

DRUGS (4)
  1. METOPROLOL TARTRATE [Suspect]
     Active Substance: METOPROLOL TARTRATE
     Indication: Computerised tomogram heart
     Route: 040
     Dates: start: 20250305, end: 20250305
  2. iopamidol (ISOVUE-370) injection [Concomitant]
     Dates: start: 20250305, end: 20250305
  3. metoprolol tartrate 100 mg oral [Concomitant]
     Dates: start: 20250305, end: 20250305
  4. sodium chloride 0.9 % flush injection [Concomitant]
     Dates: start: 20250305, end: 20250305

REACTIONS (3)
  - Foaming at mouth [None]
  - Unresponsive to stimuli [None]
  - Atrioventricular block [None]

NARRATIVE: CASE EVENT DATE: 20250305
